FAERS Safety Report 14496635 (Version 1)
Quarter: 2018Q1

REPORT INFORMATION
  Report Type: Spontaneous
  Country: US (occurrence: US)
  Receive Date: 20180206
  Receipt Date: 20180206
  Transmission Date: 20180509
  Serious: Yes (Death)
  Sender: FDA-Public Use
  Company Number: None

PATIENT
  Age: 69 Year
  Sex: Female

DRUGS (17)
  1. METFORMIN [Concomitant]
     Active Substance: METFORMIN HYDROCHLORIDE
  2. PRAVASTATIN. [Concomitant]
     Active Substance: PRAVASTATIN
  3. EXEMESTANE. [Concomitant]
     Active Substance: EXEMESTANE
  4. ALBUTEROL. [Concomitant]
     Active Substance: ALBUTEROL
  5. TRAMADOL. [Concomitant]
     Active Substance: TRAMADOL
  6. TARCEVA [Suspect]
     Active Substance: ERLOTINIB HYDROCHLORIDE
     Indication: LUNG NEOPLASM MALIGNANT
     Route: 048
     Dates: start: 201609, end: 201712
  7. ARIMIDEX [Concomitant]
     Active Substance: ANASTROZOLE
  8. BRISDELLE [Concomitant]
     Active Substance: PAROXETINE MESYLATE
  9. CYMBALTA [Concomitant]
     Active Substance: DULOXETINE HYDROCHLORIDE
  10. PRAMIPEXOLE. [Concomitant]
     Active Substance: PRAMIPEXOLE
  11. DOXYCYCL HYC 100 MG GENERIC FOR VIBRA TAB 100 MG [Concomitant]
     Active Substance: DOXYCYCLINE HYCLATE
  12. NEURONTIN [Concomitant]
     Active Substance: GABAPENTIN
  13. TOPROL XL [Concomitant]
     Active Substance: METOPROLOL SUCCINATE
  14. PRILOSEC [Concomitant]
     Active Substance: OMEPRAZOLE MAGNESIUM
  15. ADVAIR HFA [Concomitant]
     Active Substance: FLUTICASONE PROPIONATE\SALMETEROL XINAFOATE
  16. A-HYDROCORT [Concomitant]
     Active Substance: HYDROCORTISONE SODIUM SUCCINATE
  17. LEVOTHYROXIN [Concomitant]
     Active Substance: LEVOTHYROXINE

REACTIONS (2)
  - Pneumonia [None]
  - Myocardial infarction [None]

NARRATIVE: CASE EVENT DATE: 20171221
